FAERS Safety Report 16136666 (Version 1)
Quarter: 2019Q2

REPORT INFORMATION
  Report Type: Spontaneous
  Country: AU (occurrence: AU)
  Receive Date: 20190401
  Receipt Date: 20190401
  Transmission Date: 20190711
  Serious: Yes (Other)
  Sender: FDA-Public Use
  Company Number: AU-AMGEN-AUSSP2019051327

PATIENT
  Age: 63 Year
  Sex: Male

DRUGS (1)
  1. AIMOVIG [Suspect]
     Active Substance: ERENUMAB-AOOE
     Indication: PRODUCT USED FOR UNKNOWN INDICATION
     Dosage: UNK
     Route: 065

REACTIONS (7)
  - General physical condition abnormal [Unknown]
  - Zika virus infection [Unknown]
  - Headache [Not Recovered/Not Resolved]
  - Photosensitivity reaction [Unknown]
  - Migraine [Recovering/Resolving]
  - C-reactive protein increased [Unknown]
  - Arthritis [Unknown]

NARRATIVE: CASE EVENT DATE: 201403
